FAERS Safety Report 23793036 (Version 2)
Quarter: 2024Q4

REPORT INFORMATION
  Report Type: Spontaneous
  Country: CZ (occurrence: CZ)
  Receive Date: 20240429
  Receipt Date: 20241213
  Transmission Date: 20250115
  Serious: Yes (Other)
  Sender: ROCHE
  Company Number: CZ-DEM-009042

PATIENT
  Age: 67 Year
  Sex: Female

DRUGS (10)
  1. RITUXIMAB [Suspect]
     Active Substance: RITUXIMAB
     Indication: Diffuse large B-cell lymphoma recurrent
     Route: 065
     Dates: start: 202108, end: 202202
  2. RITUXIMAB [Suspect]
     Active Substance: RITUXIMAB
     Route: 065
     Dates: start: 202302, end: 2023
  3. ETOPOSIDE [Suspect]
     Active Substance: ETOPOSIDE
     Indication: Diffuse large B-cell lymphoma recurrent
     Route: 065
     Dates: start: 202108, end: 202202
  4. ETOPOSIDE [Suspect]
     Active Substance: ETOPOSIDE
     Route: 065
     Dates: start: 202302, end: 2023
  5. CISPLATIN [Suspect]
     Active Substance: CISPLATIN
     Indication: Diffuse large B-cell lymphoma recurrent
     Route: 065
     Dates: start: 202108, end: 202202
  6. CISPLATIN [Suspect]
     Active Substance: CISPLATIN
     Route: 065
     Dates: start: 202302, end: 2023
  7. DEXAMETHASONE [Suspect]
     Active Substance: DEXAMETHASONE
     Indication: Diffuse large B-cell lymphoma recurrent
     Route: 065
     Dates: start: 202108, end: 202202
  8. DEXAMETHASONE [Suspect]
     Active Substance: DEXAMETHASONE
     Route: 065
     Dates: start: 202302, end: 2023
  9. CYTARABINE [Suspect]
     Active Substance: CYTARABINE
     Indication: Diffuse large B-cell lymphoma recurrent
     Route: 065
     Dates: start: 202108, end: 202202
  10. CYTARABINE [Suspect]
     Active Substance: CYTARABINE
     Route: 065
     Dates: start: 202302, end: 2023

REACTIONS (2)
  - Circulatory collapse [Unknown]
  - Gastroenteritis clostridial [Unknown]

NARRATIVE: CASE EVENT DATE: 20230101
